FAERS Safety Report 5516310-0 (Version None)
Quarter: 2007Q4

REPORT INFORMATION
  Report Type: 
  Country: None (occurrence: None)
  Receive Date: 20071114
  Receipt Date: 20070126
  Transmission Date: 20080405
  Serious: No
  Sender: FDA-Public Use
  Company Number: A0636949A

PATIENT
  Age: 29 Year
  Sex: Female

DRUGS (2)
  1. COMMIT [Suspect]
  2. EQUATE NTS 14MG [Concomitant]
     Dosage: 14MG PER DAY
     Route: 062

REACTIONS (2)
  - INTENTIONAL DRUG MISUSE [None]
  - MOUTH ULCERATION [None]
